FAERS Safety Report 21751636 (Version 3)
Quarter: 2023Q2

REPORT INFORMATION
  Report Type: Report from Study
  Country: US (occurrence: US)
  Receive Date: 20221220
  Receipt Date: 20230502
  Transmission Date: 20230722
  Serious: No
  Sender: FDA-Public Use
  Company Number: US-ABBVIE-4242798

PATIENT
  Age: 77 Year
  Sex: Female

DRUGS (2)
  1. IMBRUVICA [Suspect]
     Active Substance: IBRUTINIB
     Indication: Chronic lymphocytic leukaemia
     Route: 048
     Dates: start: 20180413
  2. IMBRUVICA [Suspect]
     Active Substance: IBRUTINIB
     Indication: Chronic lymphocytic leukaemia
     Route: 048
     Dates: start: 20150721

REACTIONS (11)
  - White blood cell count increased [Unknown]
  - Sinusitis [Unknown]
  - Fall [Unknown]
  - Back pain [Unknown]
  - Pain [Unknown]
  - Grip strength decreased [Unknown]
  - Intervertebral disc protrusion [Unknown]
  - Tearfulness [Unknown]
  - Back disorder [Unknown]
  - Emotional disorder [Unknown]
  - Depression [Unknown]

NARRATIVE: CASE EVENT DATE: 20230101
